FAERS Safety Report 4971856-9 (Version None)
Quarter: 2006Q2

REPORT INFORMATION
  Report Type: 
  Country: None (occurrence: None)
  Receive Date: 20060413
  Receipt Date: 20060404
  Transmission Date: 20061013
  Serious: Yes (Other)
  Sender: FDA-Public Use
  Company Number: US-MERCK-0604USA00471

PATIENT
  Sex: Male

DRUGS (6)
  1. ZOCOR [Suspect]
     Indication: BLOOD CHOLESTEROL INCREASED
     Route: 048
     Dates: start: 20060201
  2. ZOCOR [Suspect]
     Route: 048
     Dates: start: 20051001, end: 20060201
  3. ZOCOR [Suspect]
     Indication: LOW DENSITY LIPOPROTEIN INCREASED
     Route: 048
     Dates: start: 20060201
  4. ZOCOR [Suspect]
     Route: 048
     Dates: start: 20051001, end: 20060201
  5. ATENOLOL [Concomitant]
     Route: 065
  6. NIACIN [Concomitant]
     Route: 065

REACTIONS (7)
  - FALL [None]
  - HYPOAESTHESIA [None]
  - LIMB DISCOMFORT [None]
  - MUSCLE ATROPHY [None]
  - MUSCULAR WEAKNESS [None]
  - MYALGIA [None]
  - MYOPATHY [None]
